FAERS Safety Report 13009808 (Version 1)
Quarter: 2016Q4

REPORT INFORMATION
  Report Type: Report from Study
  Country: CO (occurrence: CO)
  Receive Date: 20161208
  Receipt Date: 20161208
  Transmission Date: 20170207
  Serious: Yes (Other)
  Sender: FDA-Public Use
  Company Number: CO-AMGEN-COLSL2016174210

PATIENT
  Age: 60 Year
  Sex: Male
  Weight: 72 kg

DRUGS (12)
  1. IRINOTECAN [Concomitant]
     Active Substance: IRINOTECAN
     Indication: METASTASES TO LIVER
  2. BEVACIZUMAB [Concomitant]
     Active Substance: BEVACIZUMAB
     Indication: COLON CANCER METASTATIC
     Dosage: UNK
  3. BEVACIZUMAB [Concomitant]
     Active Substance: BEVACIZUMAB
     Indication: METASTASES TO LIVER
  4. 5-FU [Concomitant]
     Active Substance: FLUOROURACIL
     Indication: COLON CANCER METASTATIC
     Dosage: UNK
  5. FOLINIC ACID [Concomitant]
     Active Substance: LEUCOVORIN
     Indication: METASTASES TO LIVER
  6. IRINOTECAN [Concomitant]
     Active Substance: IRINOTECAN
     Indication: COLON CANCER METASTATIC
     Dosage: UNK
  7. VECTIBIX [Suspect]
     Active Substance: PANITUMUMAB
     Indication: METASTASES TO LIVER
  8. VECTIBIX [Suspect]
     Active Substance: PANITUMUMAB
     Indication: COLON CANCER METASTATIC
     Dosage: UNK
     Route: 065
  9. OXALIPLATIN. [Concomitant]
     Active Substance: OXALIPLATIN
     Indication: COLON CANCER METASTATIC
     Dosage: UNK
  10. OXALIPLATIN. [Concomitant]
     Active Substance: OXALIPLATIN
     Indication: METASTASES TO LIVER
  11. FOLINIC ACID [Concomitant]
     Active Substance: LEUCOVORIN
     Indication: COLON CANCER METASTATIC
     Dosage: UNK
  12. 5-FU [Concomitant]
     Active Substance: FLUOROURACIL
     Indication: METASTASES TO LIVER

REACTIONS (1)
  - Metastasis [Unknown]
